FAERS Safety Report 21981930 (Version 3)
Quarter: 2023Q1

REPORT INFORMATION
  Report Type: Report from Study
  Country: US (occurrence: US)
  Receive Date: 20230212
  Receipt Date: 20230323
  Transmission Date: 20230418
  Serious: Yes (Other)
  Sender: FDA-Public Use
  Company Number: US-BRISTOL-MYERS SQUIBB COMPANY-2023-020240

PATIENT
  Age: 63 Year
  Sex: Female
  Weight: 88.4 kg

DRUGS (3)
  1. ZEPOSIA [Suspect]
     Active Substance: OZANIMOD HYDROCHLORIDE
     Indication: Multiple sclerosis
     Dosage: FREQ : 1 TABLET DAILY
     Route: 048
     Dates: start: 20211202
  2. METOPROLOL [Concomitant]
     Active Substance: METOPROLOL
     Indication: Product used for unknown indication
  3. NORTRIPTYLINE [Concomitant]
     Active Substance: NORTRIPTYLINE
     Indication: Product used for unknown indication
     Dosage: A DAY

REACTIONS (5)
  - Arthropathy [Unknown]
  - Neuralgia [Unknown]
  - Lymphadenopathy [Unknown]
  - Sinusitis [Unknown]
  - Lymph node pain [Unknown]
